FAERS Safety Report 5931884-3 (Version None)
Quarter: 2008Q4

REPORT INFORMATION
  Report Type: 
  Country: None (occurrence: None)
  Receive Date: 20081027
  Receipt Date: 20081017
  Transmission Date: 20090506
  Serious: Yes (Other)
  Sender: FDA-Public Use
  Company Number: CA-ALLERGAN-0813292US

PATIENT
  Sex: Female

DRUGS (1)
  1. BOTOX [Suspect]
     Indication: TORTICOLLIS
     Dosage: 300 UNITS, EVERY 4 MONTHS
     Route: 030
     Dates: start: 20080131

REACTIONS (3)
  - DYSPHAGIA [None]
  - DYSPNOEA [None]
  - INFLUENZA LIKE ILLNESS [None]
